FAERS Safety Report 18818555 (Version 6)
Quarter: 2023Q2

REPORT INFORMATION
  Report Type: Report from Study
  Country: KR (occurrence: KR)
  Receive Date: 20210202
  Receipt Date: 20230503
  Transmission Date: 20230721
  Serious: Yes (Hospitalization, Other)
  Sender: FDA-Public Use
  Company Number: KR-OTSUKA-2021_001871

PATIENT
  Age: 69 Year
  Sex: Female

DRUGS (23)
  1. PONATINIB [Suspect]
     Active Substance: PONATINIB
     Indication: Philadelphia positive acute lymphocytic leukaemia
     Dosage: 45 MG, QD
     Route: 048
     Dates: start: 20191009, end: 20191107
  2. PONATINIB [Suspect]
     Active Substance: PONATINIB
     Dosage: 45 MG, QD
     Route: 048
     Dates: start: 20191205
  3. DIABEX [Concomitant]
     Active Substance: METFORMIN HYDROCHLORIDE
     Indication: Diabetes mellitus
     Dosage: 250 MILLIGRAM, BID
     Route: 048
     Dates: start: 20181129
  4. DILATREN [Concomitant]
     Indication: Chest pain
     Dosage: 3.125 MILLIGRAM, BID
     Route: 048
     Dates: start: 20170320
  5. RABEPRAZOLE SODIUM [Concomitant]
     Active Substance: RABEPRAZOLE SODIUM
     Indication: Gastrointestinal disorder prophylaxis
     Dosage: 20 MILLIGRAM, QD
     Route: 048
     Dates: start: 20191005, end: 20191205
  6. MOSAPRIDE CITRATE [Concomitant]
     Active Substance: MOSAPRIDE CITRATE
     Indication: Gastrointestinal disorder prophylaxis
     Dosage: 5 MILLIGRAM, TID
     Route: 048
     Dates: start: 20191006, end: 20191205
  7. TACOPEN [Concomitant]
     Indication: Flank pain
     Dosage: UNK UNK, TID
     Route: 048
     Dates: start: 20191010, end: 20191204
  8. URSODIOL [Concomitant]
     Active Substance: URSODIOL
     Indication: Prophylaxis
     Dosage: 100 MILLIGRAM, TID
     Route: 048
     Dates: start: 20191010, end: 20191204
  9. URSODIOL [Concomitant]
     Active Substance: URSODIOL
     Indication: Liver disorder
  10. SANCUSO [Concomitant]
     Active Substance: GRANISETRON
     Indication: Prophylaxis of nausea and vomiting
     Dosage: UNK, QD
     Route: 065
     Dates: start: 20191023, end: 20191029
  11. LECTACIN [Concomitant]
     Indication: Infection prophylaxis
     Dosage: 500 MILLIGRAM, QD
     Route: 048
     Dates: start: 20191023, end: 20191107
  12. FLUCOZOLE [Concomitant]
     Indication: Infection prophylaxis
     Dosage: 100 MILLIGRAM, BID
     Route: 048
     Dates: start: 20191023, end: 20191115
  13. SULFAMETHOXAZOLE\TRIMETHOPRIM [Concomitant]
     Active Substance: SULFAMETHOXAZOLE\TRIMETHOPRIM
     Indication: Infection prophylaxis
     Dosage: UNK UNK, QD
     Route: 048
     Dates: start: 20191024, end: 20191204
  14. LIDOCAINE [Concomitant]
     Active Substance: LIDOCAINE
     Indication: Anaesthesia
     Dosage: UNK UNK, QD
     Route: 042
     Dates: start: 20191024, end: 20191024
  15. AMINO ACIDS\DEXTROSE\ELECTROLYTES NOS [Concomitant]
     Active Substance: AMINO ACIDS\DEXTROSE\ELECTROLYTES NOS
     Indication: Nutritional supplementation
     Dosage: UNK UNK, QD
     Route: 042
     Dates: start: 20191029, end: 20191029
  16. MEGACE F [Concomitant]
     Indication: Prophylaxis
     Dosage: UNK UNK, QD
     Route: 048
     Dates: start: 20191030, end: 20191205
  17. MEGACE F [Concomitant]
     Indication: Decreased appetite
  18. LACTULOSE [Concomitant]
     Active Substance: LACTULOSE
     Indication: Constipation prophylaxis
     Dosage: UNK UNK, QD
     Route: 048
     Dates: start: 20191107, end: 20191109
  19. LENOGRASTIM [Concomitant]
     Active Substance: LENOGRASTIM
     Indication: Neutrophil count decreased
     Dosage: UNK UNK, QD
     Route: 058
     Dates: start: 20191106, end: 20191109
  20. MEPERIDINE HYDROCHLORIDE [Concomitant]
     Active Substance: MEPERIDINE HYDROCHLORIDE
     Indication: Anaesthesia
     Dosage: UNK UNK, QD
     Route: 042
     Dates: start: 20191119, end: 20191119
  21. CETRAXAL PLUS [Concomitant]
     Indication: Tympanic membrane perforation
     Dosage: UNK UNK, QD
     Route: 001
     Dates: start: 20191108, end: 20191108
  22. NEWRABELL [Concomitant]
     Indication: Gastrointestinal disorder prophylaxis
     Dosage: 10 MILLIGRAM, QD
     Route: 048
     Dates: start: 20191205
  23. GASPIRAN [Concomitant]
     Indication: Gastrointestinal disorder prophylaxis
     Dosage: 5 MILLIGRAM, TID
     Route: 048
     Dates: start: 20191205

REACTIONS (10)
  - Bronchopulmonary aspergillosis [Recovered/Resolved]
  - Hyperkalaemia [Recovered/Resolved]
  - Neutrophil count decreased [Recovered/Resolved]
  - Urticaria [Recovered/Resolved]
  - Nausea [Recovered/Resolved]
  - Paraesthesia [Recovered/Resolved]
  - Cystitis [Recovered/Resolved]
  - Headache [Recovered/Resolved]
  - Rash [Recovered/Resolved]
  - Upper respiratory tract infection [Recovered/Resolved]

NARRATIVE: CASE EVENT DATE: 20191014
